FAERS Safety Report 9540365 (Version 3)
Quarter: 2014Q1

REPORT INFORMATION
  Report Type: Spontaneous
  Country: JP (occurrence: JP)
  Receive Date: 20130920
  Receipt Date: 20140228
  Transmission Date: 20141002
  Serious: Yes (Other)
  Sender: FDA-Public Use
  Company Number: JP-ASTRAZENECA-2013SE69230

PATIENT
  Age: 35 Year
  Sex: Female

DRUGS (3)
  1. MARCAIN SPINAL [Suspect]
     Indication: CAESAREAN SECTION
     Route: 037
  2. CHINESE HERBAL MEDICINE [Concomitant]
     Indication: NASOPHARYNGITIS
  3. STEROID MEDICATION [Concomitant]
     Indication: NASOPHARYNGITIS
     Route: 055

REACTIONS (3)
  - Hypoxia [Recovered/Resolved]
  - Lymphangioleiomyomatosis [Unknown]
  - Hypotension [Recovered/Resolved]
